FAERS Safety Report 6680365-0 (Version None)
Quarter: 2010Q2

REPORT INFORMATION
  Report Type: 
  Country: None (occurrence: None)
  Receive Date: 20100412
  Receipt Date: 20100401
  Transmission Date: 20101027
  Serious: Yes (Other)
  Sender: FDA-Public Use
  Company Number: DSA_42572_2010

PATIENT
  Sex: Female
  Weight: 62.7325 kg

DRUGS (18)
  1. DILTIAZEM [Suspect]
     Indication: ATRIAL FIBRILLATION
     Dosage: 60 MG TID ORAL
     Route: 048
     Dates: start: 20090722
  2. COUMADIN [Suspect]
     Indication: CEREBROVASCULAR ACCIDENT PROPHYLAXIS
     Dosage: DF( DOSE: ORAL 4 MG DAILY EXCEPT 5MG ON SATURDAY AND MONDAY) (4 MG QD ORAL)
     Route: 048
     Dates: start: 20090604, end: 20090101
  3. COUMADIN [Suspect]
     Indication: CEREBROVASCULAR ACCIDENT PROPHYLAXIS
     Dosage: DF( DOSE: ORAL 4 MG DAILY EXCEPT 5MG ON SATURDAY AND MONDAY) (4 MG QD ORAL)
     Route: 048
     Dates: start: 20090101
  4. JANTOVEN [Suspect]
     Indication: DRUG USE FOR UNKNOWN INDICATION
     Dosage: TWICE A WEEK, FIVE DAYS A WEEK, SEVEN DAYS A WEEK
  5. FUROSEMIDE [Concomitant]
  6. TRIAMTERENE AND HYDROCHLOROTHIAZIDE [Concomitant]
  7. KLOR-CON [Concomitant]
  8. NEXIUM [Concomitant]
  9. ALLEGRA /0314201/ [Concomitant]
  10. ASPIRIN [Concomitant]
  11. CALTRATE /00109001/ [Concomitant]
  12. VITAMIN TAB [Concomitant]
  13. EXELON [Concomitant]
  14. HYDROCHLOROTHIAZIDE [Concomitant]
  15. BONIVA [Concomitant]
  16. CALTRATE 600+D [Concomitant]
  17. FLONASE [Concomitant]
  18. LISINOPRIL [Concomitant]

REACTIONS (10)
  - ATRIAL FIBRILLATION [None]
  - BLOOD GLUCOSE INCREASED [None]
  - BLOOD UREA INCREASED [None]
  - CARBOHYDRATE ANTIGEN 125 INCREASED [None]
  - CONTUSION [None]
  - DILATATION ATRIAL [None]
  - MITRAL VALVE INCOMPETENCE [None]
  - SUPRAVENTRICULAR EXTRASYSTOLES [None]
  - TREMOR [None]
  - VASCULAR INJURY [None]
